FAERS Safety Report 18055525 (Version 3)
Quarter: 2020Q3

REPORT INFORMATION
  Report Type: Spontaneous
  Country: DE (occurrence: DE)
  Receive Date: 20200722
  Receipt Date: 20200921
  Transmission Date: 20201103
  Serious: No
  Sender: FDA-Public Use
  Company Number: DE-TOLMAR, INC.-20DE022028

PATIENT
  Sex: Male

DRUGS (1)
  1. ELIGARD [Suspect]
     Active Substance: LEUPROLIDE ACETATE
     Indication: PRODUCT USED FOR UNKNOWN INDICATION
     Dosage: 45 MG
     Route: 065

REACTIONS (4)
  - Product availability issue [Unknown]
  - Syringe issue [None]
  - Wrong technique in product usage process [None]
  - Intercepted product preparation error [None]
